FAERS Safety Report 17222302 (Version 1)
Quarter: 2020Q1

REPORT INFORMATION
  Report Type: Spontaneous
  Country: US (occurrence: US)
  Receive Date: 20191231
  Receipt Date: 20191231
  Transmission Date: 20200409
  Serious: Yes (Hospitalization)
  Sender: FDA-Public Use
  Company Number: None

PATIENT
  Age: 50 Year
  Sex: Male

DRUGS (15)
  1. FISH OIL [Concomitant]
     Active Substance: FISH OIL
  2. OXYCODONE [Concomitant]
     Active Substance: OXYCODONE
  3. TORSEMIDE. [Concomitant]
     Active Substance: TORSEMIDE
  4. IPRATROPIUM [Concomitant]
     Active Substance: IPRATROPIUM
  5. PANTOPRAZOLE [Concomitant]
     Active Substance: PANTOPRAZOLE
  6. ROSUVASTATIN. [Concomitant]
     Active Substance: ROSUVASTATIN
  7. WARFARIN [Concomitant]
     Active Substance: WARFARIN
  8. ADCIRCA [Suspect]
     Active Substance: TADALAFIL
     Indication: PULMONARY HYPERTENSION
     Route: 048
     Dates: start: 20180815
  9. AMBRISENTAN [Suspect]
     Active Substance: AMBRISENTAN
     Indication: PULMONARY HYPERTENSION
     Route: 048
     Dates: start: 20190911
  10. CARVEDILOL. [Concomitant]
     Active Substance: CARVEDILOL
  11. VIT D3/VIT C [Concomitant]
  12. HYDROPMORPHON [Concomitant]
  13. PREDNISONE. [Concomitant]
     Active Substance: PREDNISONE
  14. DIAZEPAM. [Concomitant]
     Active Substance: DIAZEPAM
  15. MULTI VITAMN [Concomitant]

REACTIONS (1)
  - Lung disorder [None]

NARRATIVE: CASE EVENT DATE: 20191218
